FAERS Safety Report 20205421 (Version 5)
Quarter: 2025Q3

REPORT INFORMATION
  Report Type: Spontaneous
  Country: EU (occurrence: EU)
  Receive Date: 20211220
  Receipt Date: 20250825
  Transmission Date: 20251020
  Serious: Yes (Hospitalization, Other)
  Sender: AUROBINDO
  Company Number: EU-ROCHE-2964348

PATIENT
  Age: 61 Year
  Sex: Female

DRUGS (6)
  1. CAPECITABINE [Suspect]
     Active Substance: CAPECITABINE
     Indication: Metastases to liver
     Route: 048
  2. CAPECITABINE [Suspect]
     Active Substance: CAPECITABINE
     Indication: Neuroendocrine carcinoma
  3. TEMOZOLOMIDE [Suspect]
     Active Substance: TEMOZOLOMIDE
     Indication: Metastases to liver
     Route: 065
  4. TEMOZOLOMIDE [Suspect]
     Active Substance: TEMOZOLOMIDE
     Indication: Neuroendocrine carcinoma
  5. TINZAPARIN [Suspect]
     Active Substance: TINZAPARIN
     Indication: Neuroendocrine carcinoma
     Dosage: 10000 INTERNATIONAL UNIT, ONCE A DAY
     Route: 065
  6. TINZAPARIN [Suspect]
     Active Substance: TINZAPARIN
     Indication: Metastases to liver

REACTIONS (4)
  - Tumour lysis syndrome [Unknown]
  - Disseminated intravascular coagulation [Unknown]
  - Product use in unapproved indication [Unknown]
  - Off label use [Unknown]
